FAERS Safety Report 12008912 (Version 1)
Quarter: 2016Q1

REPORT INFORMATION
  Report Type: Spontaneous
  Country: US (occurrence: None)
  Receive Date: 20160203
  Receipt Date: 20160203
  Transmission Date: 20160526
  Serious: No
  Sender: FDA-Public Use
  Company Number: None

PATIENT
  Age: 70 Year
  Sex: Female
  Weight: 58.97 kg

DRUGS (5)
  1. LITHIUM. [Concomitant]
     Active Substance: LITHIUM
  2. VITAMIN D3 [Concomitant]
     Active Substance: CHOLECALCIFEROL
  3. CALCITRIOL. [Concomitant]
     Active Substance: CALCITRIOL
  4. PROLIA [Suspect]
     Active Substance: DENOSUMAB
     Indication: OSTEOPOROSIS
     Dosage: EVERY 6 MONTHS INTO THE MUSCLE
  5. CALCIUM CARBONATE. [Concomitant]
     Active Substance: CALCIUM CARBONATE

REACTIONS (10)
  - Skin hypertrophy [None]
  - Pain in extremity [None]
  - Cystitis [None]
  - Heart rate irregular [None]
  - Blood cholesterol increased [None]
  - Dry skin [None]
  - Rash [None]
  - Oral mucosal eruption [None]
  - Actinic cheilitis [None]
  - Immune system disorder [None]
